FAERS Safety Report 7644268-7 (Version None)
Quarter: 2011Q3

REPORT INFORMATION
  Report Type: 
  Country: None (occurrence: None)
  Receive Date: 20110729
  Receipt Date: 20110722
  Transmission Date: 20111222
  Serious: Yes (Other)
  Sender: FDA-Public Use
  Company Number: PHEH2010US03371

PATIENT
  Sex: Female

DRUGS (1)
  1. ZELNORM [Suspect]
     Dosage: UNK
     Dates: start: 20040101

REACTIONS (10)
  - UPPER RESPIRATORY TRACT INFECTION [None]
  - BACK PAIN [None]
  - VAGINAL INFECTION [None]
  - ARTHRALGIA [None]
  - CHEST PAIN [None]
  - ANAEMIA [None]
  - INJURY [None]
  - BLOOD CHOLESTEROL INCREASED [None]
  - DYSLIPIDAEMIA [None]
  - VITAMIN B12 DEFICIENCY [None]
